FAERS Safety Report 7061014-9 (Version None)
Quarter: 2010Q4

REPORT INFORMATION
  Report Type: 
  Country: None (occurrence: None)
  Receive Date: 20101026
  Receipt Date: 20101013
  Transmission Date: 20110411
  Serious: Yes (Other)
  Sender: FDA-Public Use
  Company Number: US-PFIZER INC-2010133284

PATIENT
  Sex: Female

DRUGS (10)
  1. ZOLOFT [Suspect]
     Indication: DEPRESSION
     Dosage: UNK
  2. ZOLOFT [Suspect]
     Indication: SUICIDAL IDEATION
  3. ZOLOFT [Suspect]
     Indication: ABNORMAL DREAMS
  4. XANAX [Suspect]
     Dosage: 1 MG, 4X/DAY
  5. EFFEXOR XR [Suspect]
     Indication: DEPRESSION
     Dosage: UNK
  6. EFFEXOR XR [Suspect]
     Indication: SUICIDAL IDEATION
  7. EFFEXOR XR [Suspect]
     Indication: ABNORMAL DREAMS
  8. AMBIEN [Suspect]
     Indication: SLEEP DISORDER
     Dosage: UNK
  9. PAXIL [Concomitant]
     Dosage: UNK
  10. TRAZODONE [Concomitant]
     Dosage: UNK

REACTIONS (10)
  - ABNORMAL DREAMS [None]
  - ASTHENIA [None]
  - DEPRESSION [None]
  - FEELING ABNORMAL [None]
  - HALLUCINATION [None]
  - INSOMNIA [None]
  - PHOTOPHOBIA [None]
  - SINUS HEADACHE [None]
  - SUICIDAL IDEATION [None]
  - VISUAL IMPAIRMENT [None]
